FAERS Safety Report 17344963 (Version 1)
Quarter: 2020Q1

REPORT INFORMATION
  Report Type: Spontaneous
  Country: US (occurrence: US)
  Receive Date: 20200129
  Receipt Date: 20200129
  Transmission Date: 20200409
  Serious: No
  Sender: FDA-Public Use
  Company Number: US-ALLERGAN-1949902US

PATIENT
  Age: 74 Year
  Sex: Female

DRUGS (15)
  1. ASPIRIN. [Concomitant]
     Active Substance: ASPIRIN
  2. GLIPIZIDE. [Concomitant]
     Active Substance: GLIPIZIDE
  3. DORZOLAMIDE [Concomitant]
     Active Substance: DORZOLAMIDE
  4. CALCIUM [Concomitant]
     Active Substance: CALCIUM
  5. OMEPRAZOLE. [Concomitant]
     Active Substance: OMEPRAZOLE
  6. BOTOX COSMETIC [Suspect]
     Active Substance: ONABOTULINUMTOXINA
     Indication: HYPERTONIC BLADDER
     Dosage: 100 UNITS, SINGLE
     Dates: start: 20191112, end: 20191112
  7. VERAPAMIL [Concomitant]
     Active Substance: VERAPAMIL HYDROCHLORIDE
  8. VITAMIN D [Concomitant]
     Active Substance: VITAMIN D NOS
  9. LEVOTHRYOXIN [Concomitant]
     Indication: THYROID DISORDER
  10. OZURDEX [Concomitant]
     Active Substance: DEXAMETHASONE
  11. BIOTIN [Concomitant]
     Active Substance: BIOTIN
  12. CRANBERRY. [Concomitant]
     Active Substance: CRANBERRY
     Route: 048
  13. LOVASTATIN. [Concomitant]
     Active Substance: LOVASTATIN
  14. TELMISARTAN. [Concomitant]
     Active Substance: TELMISARTAN
  15. TOPIRAMATE. [Concomitant]
     Active Substance: TOPIRAMATE

REACTIONS (2)
  - Obstructive airways disorder [Recovered/Resolved]
  - Swelling [Recovered/Resolved]

NARRATIVE: CASE EVENT DATE: 20191113
